FAERS Safety Report 10886928 (Version 2)
Quarter: 2017Q3

REPORT INFORMATION
  Report Type: Spontaneous
  Country: US (occurrence: US)
  Receive Date: 20150304
  Receipt Date: 20170811
  Transmission Date: 20171127
  Serious: No
  Sender: FDA-Public Use
  Company Number: US-PFIZER INC-2015069663

PATIENT
  Age: 52 Year
  Sex: Female
  Weight: 63.95 kg

DRUGS (15)
  1. VITAMIN B COMPLEX [Concomitant]
     Active Substance: CYANOCOBALAMIN\DEXPANTHENOL\NIACINAMIDE\PYRIDOXINE HYDROCHLORIDE\RIBOFLAVIN 5^-PHOSPHATE SODIUM\THIAMINE HYDROCHLORIDE\VITAMIN B COMPLEX
     Dosage: UNK
     Route: 048
     Dates: start: 20140416
  2. FLECTOR [Concomitant]
     Active Substance: DICLOFENAC EPOLAMINE
     Indication: PAIN
     Dosage: UNK, 2X/DAY (1 PATCH)
     Route: 062
  3. PRAVASTATIN. [Concomitant]
     Active Substance: PRAVASTATIN
     Dosage: 40 MG, 1X/DAY (EVERY DAY)
     Route: 048
     Dates: start: 20141120
  4. LYRICA [Suspect]
     Active Substance: PREGABALIN
     Dosage: 75 MG, 2X/DAY
     Route: 048
     Dates: start: 201408
  5. CELEBREX [Suspect]
     Active Substance: CELECOXIB
     Dosage: 200 MG, DAILY
     Route: 048
     Dates: start: 20130716, end: 20141120
  6. CYCLOBENZAPRINE HCL [Concomitant]
     Active Substance: CYCLOBENZAPRINE HYDROCHLORIDE
     Dosage: 10 MG, 3X/DAY (AS NEEDED)
     Route: 048
     Dates: start: 20131022, end: 20141120
  7. CYMBALTA [Concomitant]
     Active Substance: DULOXETINE HYDROCHLORIDE
     Dosage: 30 MG, DAILY (DELAYED RELEASE PARTICLES)
     Route: 048
     Dates: start: 20121003, end: 20141120
  8. GLYBURIDE. [Concomitant]
     Active Substance: GLYBURIDE
     Dosage: 2.5 MG, DAILY (TAKE 1 TAB EVERY DAY BEFORE BREAKFAST)
     Route: 048
     Dates: start: 20141120, end: 20141120
  9. GLYBURIDE. [Concomitant]
     Active Substance: GLYBURIDE
     Dosage: 5 MG, 2X/DAY (TAKE 2 TAB EVERY DAY BEFORE BREAKFAST)
     Route: 048
     Dates: start: 20141120
  10. NOVOLOG [Concomitant]
     Active Substance: INSULIN ASPART
     Dosage: 100 IU/ML, UNK
     Route: 058
  11. GABAPENTIN. [Concomitant]
     Active Substance: GABAPENTIN
     Dosage: 300 MG, 3X/DAY
     Route: 048
     Dates: start: 20141120, end: 20141220
  12. LEVEMIR [Concomitant]
     Active Substance: INSULIN DETEMIR
     Dosage: 100 IU/ML, UNK
     Route: 058
  13. GABAPENTIN. [Concomitant]
     Active Substance: GABAPENTIN
     Dosage: UNK
     Route: 048
     Dates: start: 20120917
  14. LORATADINE. [Concomitant]
     Active Substance: LORATADINE
     Dosage: 10 MG, 1X/DAY
     Route: 048
     Dates: start: 20141120
  15. METFORMIN [Concomitant]
     Active Substance: METFORMIN HYDROCHLORIDE
     Dosage: 1000 MG, 2X/DAY (MORNING AND EVENING MEALS)
     Route: 048
     Dates: start: 20141120

REACTIONS (16)
  - Vision blurred [Unknown]
  - Patellofemoral pain syndrome [Unknown]
  - Dry eye [Unknown]
  - Palpitations [Unknown]
  - Tinnitus [Unknown]
  - Ocular hyperaemia [Unknown]
  - Heart rate irregular [Unknown]
  - Dysphagia [Unknown]
  - Diplopia [Unknown]
  - Eye pain [Unknown]
  - Rash [Unknown]
  - Erythema [Unknown]
  - Lacrimation increased [Unknown]
  - Night sweats [Unknown]
  - Dyspnoea [Unknown]
  - Dry mouth [Unknown]
